FAERS Safety Report 5344044-4 (Version None)
Quarter: 2007Q2

REPORT INFORMATION
  Report Type: 
  Country: None (occurrence: None)
  Receive Date: 20070604
  Receipt Date: 20070529
  Transmission Date: 20071010
  Serious: Yes (Death)
  Sender: FDA-Public Use
  Company Number: A0653211A

PATIENT
  Age: 73 Year
  Sex: Male

DRUGS (5)
  1. AVANDIA [Suspect]
     Dosage: 4MG TWICE PER DAY
     Route: 048
     Dates: start: 20051001, end: 20061021
  2. LASIX [Concomitant]
  3. SINEMET [Concomitant]
  4. POTASSIUM ACETATE [Concomitant]
  5. GLUCOTROL XL [Concomitant]

REACTIONS (2)
  - OEDEMA [None]
  - SUDDEN CARDIAC DEATH [None]
